FAERS Safety Report 17841609 (Version 1)
Quarter: 2020Q2

REPORT INFORMATION
  Report Type: Spontaneous
  Country: GB (occurrence: GB)
  Receive Date: 20200529
  Receipt Date: 20200529
  Transmission Date: 20200714
  Serious: Yes (Hospitalization, Other)
  Sender: FDA-Public Use
  Company Number: GB-TEVA-2020-GB-1240840

PATIENT
  Age: 52 Year
  Sex: Female

DRUGS (6)
  1. WARFARIN SODIUM. [Suspect]
     Active Substance: WARFARIN SODIUM
     Indication: PORTAL VEIN THROMBOSIS
     Route: 048
  2. RITONAVIR. [Concomitant]
     Active Substance: RITONAVIR
  3. ABACAVIR HYDROCHLORIDE [Concomitant]
  4. DARUNAVIR [Concomitant]
     Active Substance: DARUNAVIR
  5. CARVEDILOL. [Concomitant]
     Active Substance: CARVEDILOL
  6. AMOXICILLIN. [Concomitant]
     Active Substance: AMOXICILLIN

REACTIONS (3)
  - Malaise [Unknown]
  - SARS-CoV-2 test positive [Unknown]
  - International normalised ratio increased [Recovered/Resolved]
